FAERS Safety Report 11856430 (Version 1)
Quarter: 2015Q4

REPORT INFORMATION
  Report Type: Spontaneous
  Country: US (occurrence: US)
  Receive Date: 20151221
  Receipt Date: 20151221
  Transmission Date: 20160305
  Serious: Yes (Death)
  Sender: FDA-Public Use
  Company Number: US-CELGENE-USA-2015121876

PATIENT

DRUGS (2)
  1. VIDAZA [Suspect]
     Active Substance: AZACITIDINE
     Indication: SECOND PRIMARY MALIGNANCY
     Dosage: 50 MILLIGRAM/SQ. METER
     Route: 058
  2. ENTINOSTAT [Suspect]
     Active Substance: ENTINOSTAT
     Indication: SECOND PRIMARY MALIGNANCY
     Route: 058

REACTIONS (1)
  - Infection [Fatal]
